FAERS Safety Report 8649103 (Version 5)
Quarter: 2012Q4

REPORT INFORMATION
  Report Type: Report from Study
  Country: BR (occurrence: BR)
  Receive Date: 20120704
  Receipt Date: 20121023
  Transmission Date: 20130627
  Serious: Yes (Death, Hospitalization, Disabling)
  Sender: FDA-Public Use
  Company Number: BR-ROCHE-1044878

PATIENT
  Age: 52 Year
  Sex: Female
  Weight: 61.9 kg

DRUGS (11)
  1. ADO-TRASTUZUMAB EMTANSINE [Suspect]
     Indication: BREAST CANCER METASTATIC
     Dosage: Last dose taken was 237.6 MG
     Route: 042
     Dates: start: 20111213, end: 20120124
  2. TYLEX (BRAZIL) [Concomitant]
     Indication: CHEST PAIN
     Route: 065
     Dates: start: 201110
  3. TYLEX (BRAZIL) [Concomitant]
     Indication: COUGH
  4. DEXAMETHASONE [Concomitant]
     Indication: COUGH
     Route: 065
     Dates: start: 20111010
  5. GUARANA [Concomitant]
     Indication: ASTHENIA
     Route: 065
     Dates: start: 20120103
  6. AD-MUC (BRAZIL) [Concomitant]
     Indication: NASAL DISCOMFORT
     Route: 065
     Dates: start: 20120215
  7. NORADRENALINE [Concomitant]
     Indication: HYPOTENSION
     Route: 065
     Dates: start: 20120301
  8. INSULIN [Concomitant]
     Indication: HYPERGLYCAEMIA
     Route: 065
     Dates: start: 20120301
  9. TAZOCIN [Concomitant]
     Indication: INFECTION
     Route: 065
     Dates: start: 20120301
  10. LINEZOLID [Concomitant]
     Indication: INFECTION
     Route: 065
     Dates: start: 20120301
  11. PERTUZUMAB [Suspect]
     Indication: BREAST CANCER METASTATIC
     Route: 042
     Dates: start: 20111213, end: 20120124

REACTIONS (1)
  - Septic shock [Fatal]
